FAERS Safety Report 13602680 (Version 2)
Quarter: 2017Q2

REPORT INFORMATION
  Report Type: Spontaneous
  Country: US (occurrence: US)
  Receive Date: 20170601
  Receipt Date: 20170629
  Transmission Date: 20170830
  Serious: Yes (Other)
  Sender: FDA-Public Use
  Company Number: US-PFIZER INC-2017234106

PATIENT
  Sex: Female

DRUGS (1)
  1. XELJANZ [Suspect]
     Active Substance: TOFACITINIB CITRATE
     Dosage: 5 MG, 2X/DAY

REACTIONS (18)
  - Major depression [Unknown]
  - Blood creatinine increased [Unknown]
  - Basophil count increased [Unknown]
  - Malaise [Unknown]
  - Muscle contracture [Unknown]
  - Fatigue [Unknown]
  - Joint swelling [Unknown]
  - Blood urea decreased [Unknown]
  - Blood albumin decreased [Unknown]
  - Glomerular filtration rate decreased [Unknown]
  - Joint range of motion decreased [Unknown]
  - Protein total decreased [Unknown]
  - Tenderness [Unknown]
  - Pre-existing condition improved [Unknown]
  - Palpitations [Unknown]
  - Mean cell haemoglobin concentration decreased [Unknown]
  - Soft tissue swelling [Unknown]
  - Blood glucose increased [Unknown]
